FAERS Safety Report 5761929-5 (Version None)
Quarter: 2008Q2

REPORT INFORMATION
  Report Type: 
  Country: None (occurrence: None)
  Receive Date: 20080603
  Receipt Date: 20080521
  Transmission Date: 20081010
  Serious: Yes (Hospitalization)
  Sender: FDA-Public Use
  Company Number: GXKR2008US04698

PATIENT
  Age: 36 Year
  Sex: Female

DRUGS (5)
  1. VENLAFAXIINE HCL [Suspect]
     Indication: DEPRESSION
  2. IMIPRAMINE [Suspect]
     Indication: HEADACHE
  3. LITHIUM CARBONATE [Suspect]
     Indication: BIPOLAR DISORDER
  4. LINEZOLID [Suspect]
     Indication: EMPYEMA
  5. VANCOMYCIN [Concomitant]

REACTIONS (14)
  - BLOOD PRESSURE INCREASED [None]
  - CONVULSION [None]
  - DRUG ADMINISTRATION ERROR [None]
  - DRUG INTERACTION [None]
  - HEART RATE INCREASED [None]
  - HYPERHIDROSIS [None]
  - HYPERREFLEXIA [None]
  - MYDRIASIS [None]
  - PUPILLARY REFLEX IMPAIRED [None]
  - RESPIRATORY RATE INCREASED [None]
  - SEROTONIN SYNDROME [None]
  - TACHYCARDIA [None]
  - TREMOR [None]
  - UNRESPONSIVE TO STIMULI [None]
